FAERS Safety Report 8387981-9 (Version None)
Quarter: 2012Q2

REPORT INFORMATION
  Report Type: 
  Country: None (occurrence: None)
  Receive Date: 20120525
  Receipt Date: 20120524
  Transmission Date: 20120825
  Serious: Yes (Death, Other)
  Sender: FDA-Public Use
  Company Number: PHHY2012US029990

PATIENT
  Age: 60 Year
  Sex: Male

DRUGS (1)
  1. BUPROPION HCL [Suspect]

REACTIONS (1)
  - SHOCK [None]
